FAERS Safety Report 24861845 (Version 2)
Quarter: 2025Q3

REPORT INFORMATION
  Report Type: Spontaneous
  Country: EU (occurrence: EU)
  Receive Date: 20250120
  Receipt Date: 20250809
  Transmission Date: 20251021
  Serious: Yes (Hospitalization, Other)
  Sender: ALEXION PHARMACEUTICALS
  Company Number: EU-SA-2024SA368347

PATIENT
  Age: 9 Week
  Sex: Male
  Weight: 5.29 kg

DRUGS (1)
  1. BEYFORTUS [Suspect]
     Active Substance: NIRSEVIMAB-ALIP
     Indication: Immunisation
     Route: 065
     Dates: start: 20241004, end: 20241004

REACTIONS (6)
  - Respiratory syncytial virus test positive [Unknown]
  - Respiratory syncytial virus bronchiolitis [Recovered/Resolved]
  - Influenza [Recovered/Resolved]
  - Cough [Unknown]
  - Nasal congestion [Unknown]
  - Pyrexia [Unknown]

NARRATIVE: CASE EVENT DATE: 20241112
